FAERS Safety Report 9509777 (Version 1)
Quarter: 2013Q3

REPORT INFORMATION
  Report Type: Spontaneous
  Country: US (occurrence: US)
  Receive Date: 20130909
  Receipt Date: 20130909
  Transmission Date: 20140515
  Serious: No
  Sender: FDA-Public Use
  Company Number: US-BRISTOL-MYERS SQUIBB COMPANY-18854786

PATIENT
  Age: 54 Year
  Sex: Female
  Weight: 65.76 kg

DRUGS (5)
  1. ABILIFY [Suspect]
     Dosage: TITRATING ABILIFY DOWN TO 15MG.?PRESCRIPTION#: 037290942165
     Dates: start: 2012
  2. LEXAPRO [Concomitant]
  3. WELLBUTRIN XL [Concomitant]
  4. SYNTHROID [Concomitant]
  5. CLONAZEPAM [Concomitant]

REACTIONS (2)
  - Tremor [Unknown]
  - Weight increased [Not Recovered/Not Resolved]
